FAERS Safety Report 5135217-4 (Version None)
Quarter: 2006Q4

REPORT INFORMATION
  Report Type: 
  Country: None (occurrence: None)
  Receive Date: 20061024
  Receipt Date: 20061024
  Transmission Date: 20070319
  Serious: Yes (Hospitalization)
  Sender: FDA-Public Use
  Company Number: None

PATIENT
  Sex: Male

DRUGS (15)
  1. TIGECYCLINE 50 MG [Suspect]
     Indication: SKIN ULCER
     Dosage: 50 MG Q 12 HR IV
     Route: 042
     Dates: start: 20060828, end: 20060829
  2. COMBIVENT [Concomitant]
  3. COLCHICINE [Concomitant]
  4. DARBEPOETIN [Concomitant]
  5. ENOXAPARIN SODIUM [Concomitant]
  6. FERROUS SULFATE TAB [Concomitant]
  7. GLYBURIDE [Concomitant]
  8. MAGNESIUM OXIDE [Concomitant]
  9. NPH INSULIN [Concomitant]
  10. MULTIVITAMINS WITH MINERALS [Concomitant]
  11. NEPHROCAPS [Concomitant]
  12. OMEPRAZOLE [Concomitant]
  13. PROCHLORPERAZINE [Concomitant]
  14. SIMETHICONE [Concomitant]
  15. WARFARIN SODIUM [Concomitant]

REACTIONS (1)
  - HYPOGLYCAEMIA [None]
